FAERS Safety Report 5486277-2 (Version None)
Quarter: 2007Q4

REPORT INFORMATION
  Report Type: 
  Country: None (occurrence: None)
  Receive Date: 20071016
  Receipt Date: 20071005
  Transmission Date: 20080405
  Serious: Yes (Other)
  Sender: FDA-Public Use
  Company Number: PHMT2007CA01900

PATIENT
  Age: 61 Year
  Sex: Male

DRUGS (4)
  1. CLOZARIL [Suspect]
     Indication: SCHIZOPHRENIA
     Dates: start: 20070801, end: 20070817
  2. ZYPREXA [Concomitant]
     Dosage: 30MG A DAY
  3. CELEXA [Concomitant]
     Dosage: 30MG PER DAY
  4. CLONAZEPAM [Concomitant]
     Dosage: 1MG TID

REACTIONS (7)
  - INFLUENZA LIKE ILLNESS [None]
  - MUSCULOSKELETAL STIFFNESS [None]
  - NEUROLEPTIC MALIGNANT SYNDROME [None]
  - NEUTROPHIL COUNT INCREASED [None]
  - PNEUMONIA [None]
  - PYREXIA [None]
  - RENAL CYST [None]
